FAERS Safety Report 24624289 (Version 1)
Quarter: 2024Q4

REPORT INFORMATION
  Report Type: Spontaneous
  Country: IT (occurrence: IT)
  Receive Date: 20241115
  Receipt Date: 20241115
  Transmission Date: 20250115
  Serious: Yes (Other)
  Sender: BRISTOL-MYERS SQUIBB COMPANY
  Company Number: IT-MLMSERVICE-20241030-PI240282-00255-1

PATIENT
  Age: 8 Decade
  Sex: Female

DRUGS (4)
  1. PACLITAXEL [Suspect]
     Active Substance: PACLITAXEL
     Indication: Invasive ductal breast carcinoma
     Dosage: FREQUENCY: DAYS 1, 8, AND 15 OVER A 28-DAY CYCLE FOR 6 CYCLES
     Route: 042
     Dates: start: 202112, end: 2022
  2. PACLITAXEL [Suspect]
     Active Substance: PACLITAXEL
     Indication: Breast cancer recurrent
  3. ATEZOLIZUMAB [Suspect]
     Active Substance: ATEZOLIZUMAB
     Indication: Invasive ductal breast carcinoma
     Dosage: FREQUENCY: DAYS 1 AND 15 OF EVERY 28-DAY CYCLE
     Route: 042
     Dates: start: 202112
  4. ATEZOLIZUMAB [Suspect]
     Active Substance: ATEZOLIZUMAB
     Indication: Breast cancer recurrent

REACTIONS (2)
  - Gastrointestinal toxicity [Unknown]
  - Haematotoxicity [Unknown]
